FAERS Safety Report 6094887-7 (Version None)
Quarter: 2009Q1

REPORT INFORMATION
  Report Type: 
  Country: None (occurrence: None)
  Receive Date: 20090223
  Receipt Date: 20081203
  Transmission Date: 20090719
  Serious: Yes (Other)
  Sender: FDA-Public Use
  Company Number: ALA_00215_2008

PATIENT
  Sex: Female

DRUGS (3)
  1. ROWASA [Suspect]
     Indication: COLITIS
     Dosage: (4 G QD, USED AT NIGHT RECTAL)
     Route: 054
     Dates: start: 20080716, end: 20080816
  2. ASACOL [Suspect]
     Indication: COLITIS
     Dosage: (4.8 G QD, 6 TABS IN AM AND 6 TABS IN PM ORAL)
     Route: 048
     Dates: start: 20080716, end: 20080816
  3. CANASA [Suspect]
     Indication: COLITIS
     Dosage: (1 G QD, USED IN AM RECTAL)
     Route: 054
     Dates: start: 20080716, end: 20080716

REACTIONS (1)
  - PERICARDITIS [None]
